FAERS Safety Report 6146316-2 (Version None)
Quarter: 2009Q2

REPORT INFORMATION
  Report Type: 
  Country: None (occurrence: None)
  Receive Date: 20090403
  Receipt Date: 20090403
  Transmission Date: 20091009
  Serious: No
  Sender: FDA-Public Use
  Company Number: None

PATIENT
  Age: 58 Year
  Sex: Male

DRUGS (2)
  1. DIAZEPAM [Suspect]
     Indication: AGITATION
     Dosage: 10 MG IV
     Route: 042
     Dates: start: 20080507, end: 20080509
  2. MORPHINE [Suspect]
     Indication: PAIN
     Dosage: 4 MG IV
     Route: 042
     Dates: start: 20080507, end: 20080511

REACTIONS (2)
  - AGITATION [None]
  - DELIRIUM [None]
